FAERS Safety Report 23527836 (Version 1)
Quarter: 2024Q1

REPORT INFORMATION
  Report Type: Spontaneous
  Country: TW (occurrence: TW)
  Receive Date: 20240215
  Receipt Date: 20240215
  Transmission Date: 20240410
  Serious: Yes (Life-Threatening, Hospitalization, Other)
  Sender: FDA-Public Use
  Company Number: TW-PFIZER INC-PV202400020409

PATIENT
  Age: 32 Year
  Sex: Female

DRUGS (2)
  1. LORAZEPAM [Suspect]
     Active Substance: LORAZEPAM
     Indication: Insomnia
     Dosage: 2 MG, AS NEEDED
  2. SIBUTRAMINE [Suspect]
     Active Substance: SIBUTRAMINE
     Indication: Overweight
     Dosage: 10 MG, DAILY

REACTIONS (1)
  - Hypoglycaemic coma [Recovered/Resolved]
